FAERS Safety Report 5293094-5 (Version None)
Quarter: 2007Q2

REPORT INFORMATION
  Report Type: 
  Country: None (occurrence: None)
  Receive Date: 20070411
  Receipt Date: 20070405
  Transmission Date: 20071010
  Serious: Yes (Hospitalization)
  Sender: FDA-Public Use
  Company Number: JP-BAYER-200710214BYL

PATIENT
  Age: 85 Year
  Sex: Male

DRUGS (4)
  1. CIPROXAN-I.V.300 [Suspect]
     Indication: PNEUMONIA
     Dosage: TOTAL DAILY DOSE: 600 MG  UNIT DOSE: 300 MG
     Route: 041
     Dates: start: 20070228, end: 20070309
  2. THEO-DUR [Concomitant]
     Dosage: TOTAL DAILY DOSE: 400 MG  UNIT DOSE: 200 MG
     Route: 048
  3. PREDONINE [Concomitant]
     Dosage: TOTAL DAILY DOSE: 5 MG  UNIT DOSE: 5 G
     Route: 048
  4. MEPTIN [Concomitant]
     Route: 048

REACTIONS (1)
  - HEPATIC FUNCTION ABNORMAL [None]
